FAERS Safety Report 25976852 (Version 1)
Quarter: 2025Q4

REPORT INFORMATION
  Report Type: Spontaneous
  Country: US (occurrence: US)
  Receive Date: 20251029
  Receipt Date: 20251029
  Transmission Date: 20260118
  Serious: No
  Sender: ETON PHARMACEUTICALS, INC
  Company Number: US-IPSEN Group, Research and Development-2025-03711

PATIENT
  Age: 8 Year
  Sex: Male
  Weight: 17 kg

DRUGS (2)
  1. INCRELEX [Suspect]
     Active Substance: MECASERMIN
     Indication: Primary insulin like growth factor-1 deficiency
     Dosage: 0.21 MILLILITER, Q12H
     Route: 058
     Dates: start: 20250121
  2. CYPROHEPTADINE [Concomitant]
     Active Substance: CYPROHEPTADINE

REACTIONS (1)
  - Pyrexia [Recovered/Resolved]

NARRATIVE: CASE EVENT DATE: 20250201
